FAERS Safety Report 4553275-2 (Version None)
Quarter: 2005Q1

REPORT INFORMATION
  Report Type: 
  Country: None (occurrence: None)
  Receive Date: 20050113
  Receipt Date: 20041228
  Transmission Date: 20050727
  Serious: Yes (Death)
  Sender: FDA-Public Use
  Company Number: DSA_25510_2004

PATIENT
  Age: 65 Year
  Sex: Female

DRUGS (4)
  1. RENITEC [Suspect]
     Dosage: DF
  2. DIGOXIN [Concomitant]
  3. LASILIX [Concomitant]
  4. KARDEGIC [Concomitant]

REACTIONS (1)
  - CARDIAC ARREST [None]
